FAERS Safety Report 13228073 (Version 1)
Quarter: 2017Q1

REPORT INFORMATION
  Report Type: Spontaneous
  Country: GB (occurrence: GB)
  Receive Date: 20170213
  Receipt Date: 20170213
  Transmission Date: 20170428
  Serious: Yes (Hospitalization)
  Sender: FDA-Public Use
  Company Number: GB-BAXALTA-2017BLT001060

PATIENT
  Age: 53 Year
  Sex: Female

DRUGS (1)
  1. HYQVIA [Suspect]
     Active Substance: HUMAN IMMUNOGLOBULIN G\HYALURONIDASE RECOMBINANT HUMAN
     Indication: PRODUCT USED FOR UNKNOWN INDICATION
     Dosage: 35 G, UNK
     Route: 058

REACTIONS (5)
  - Sepsis [Recovered/Resolved]
  - Stress [Unknown]
  - Renal impairment [Unknown]
  - Blood pressure increased [Unknown]
  - Madarosis [Unknown]

NARRATIVE: CASE EVENT DATE: 201602
